FAERS Safety Report 10952162 (Version 1)
Quarter: 2015Q1

REPORT INFORMATION
  Report Type: Spontaneous
  Country: US (occurrence: US)
  Receive Date: 20150325
  Receipt Date: 20150325
  Transmission Date: 20150721
  Serious: No
  Sender: FDA-Public Use
  Company Number: US-SUN PHARMACEUTICAL INDUSTRIES LTD-2014SUN01939

PATIENT

DRUGS (3)
  1. METFORMIN HCL ER TABS 500MG [Suspect]
     Active Substance: METFORMIN HYDROCHLORIDE
     Indication: BLOOD INSULIN INCREASED
     Dosage: 1 DF, UNK
     Route: 048
  2. ALLOPURINOL. [Concomitant]
     Active Substance: ALLOPURINOL
     Indication: PRODUCT USED FOR UNKNOWN INDICATION
  3. SINGULAIR [Concomitant]
     Active Substance: MONTELUKAST SODIUM
     Indication: PRODUCT USED FOR UNKNOWN INDICATION
     Dosage: 500 MG, ONCE DAILY AFTER DINNER
     Route: 048

REACTIONS (2)
  - Dyspepsia [Recovered/Resolved]
  - Product physical issue [Unknown]
